FAERS Safety Report 23444224 (Version 2)
Quarter: 2024Q1

REPORT INFORMATION
  Report Type: Report from Study
  Country: US (occurrence: None)
  Receive Date: 20240125
  Receipt Date: 20240126
  Transmission Date: 20240410
  Serious: Yes (Hospitalization, Other)
  Sender: FDA-Public Use
  Company Number: 2024A017166

PATIENT
  Age: 83 Year
  Sex: Female
  Weight: 72.6 kg

DRUGS (13)
  1. DALIRESP [Suspect]
     Active Substance: ROFLUMILAST
     Route: 048
  2. METOPROLOL [Suspect]
     Active Substance: METOPROLOL
     Route: 048
  3. ROSUVASTATIN [Suspect]
     Active Substance: ROSUVASTATIN
     Route: 048
  4. MONTELUKAST [Concomitant]
     Active Substance: MONTELUKAST SODIUM
  5. ALBUTEROL [Concomitant]
     Active Substance: ALBUTEROL
  6. TRELEGY ELLIPTA [Concomitant]
     Active Substance: FLUTICASONE FUROATE\UMECLIDINIUM BROMIDE\VILANTEROL TRIFENATATE
     Dosage: 200/62.5/25
  7. CYMBATTA [Concomitant]
  8. GABAPENTIN [Concomitant]
     Active Substance: GABAPENTIN
  9. LASIX [Concomitant]
     Active Substance: FUROSEMIDE
  10. MAGNESIUM OXIDE [Concomitant]
     Active Substance: MAGNESIUM OXIDE
  11. ELIQUIS [Concomitant]
     Active Substance: APIXABAN
  12. TAMSULOSIN [Concomitant]
     Active Substance: TAMSULOSIN
  13. CETIRIZINE HYDROCHLORIDE [Concomitant]
     Active Substance: CETIRIZINE HYDROCHLORIDE

REACTIONS (12)
  - Influenza [Unknown]
  - Left ventricular hypertrophy [Unknown]
  - Atrial fibrillation [Unknown]
  - Respiratory syncytial virus infection [Unknown]
  - Chronic obstructive pulmonary disease [Unknown]
  - Neuropathy peripheral [Unknown]
  - Hypertension [Unknown]
  - Hyperlipidaemia [Unknown]
  - Urinary retention [Unknown]
  - Attention deficit hyperactivity disorder [Unknown]
  - Restless legs syndrome [Unknown]
  - Emphysema [Unknown]
